FAERS Safety Report 4940640-4 (Version None)
Quarter: 2006Q1

REPORT INFORMATION
  Report Type: 
  Country: None (occurrence: None)
  Receive Date: 20060206
  Receipt Date: 20050209
  Transmission Date: 20060701
  Serious: Yes (Hospitalization)
  Sender: FDA-Public Use
  Company Number: MEDI-0002816

PATIENT
  Age: 56 Year
  Sex: Male
  Weight: 81.6475 kg

DRUGS (27)
  1. ETHYOL [Suspect]
     Indication: CHEMOTHERAPY
     Dosage: 500 MG, 5 IN 1 WK, SUBCUTANEOUS
     Route: 058
     Dates: start: 20050105, end: 20050118
  2. ETHYOL [Suspect]
     Indication: RADIOTHERAPY
     Dosage: 500 MG, 5 IN 1 WK, SUBCUTANEOUS
     Route: 058
     Dates: start: 20050105, end: 20050118
  3. RADIATION THERAPY [Concomitant]
  4. FLUOROURACIL [Concomitant]
  5. CISPLATIN [Concomitant]
  6. ATIVAN [Concomitant]
  7. SCOPOLAMINE PATCH (HYOSCINE) [Concomitant]
  8. REGLAN [Concomitant]
  9. BENADRYL [Concomitant]
  10. METHADONE HCL [Concomitant]
  11. OXYCODONE HCL [Concomitant]
  12. TYLENOL [Concomitant]
  13. MOBIC [Concomitant]
  14. AMITRIPTYLINE (AMITRIPTYLINE) [Concomitant]
  15. DULCOLAX [Concomitant]
  16. SENNA (SENNA) [Concomitant]
  17. COLACE (DOCUSATE SODIUM) [Concomitant]
  18. MIRALAX [Concomitant]
  19. LOVENOX [Concomitant]
  20. ACIPHEX [Concomitant]
  21. CALCIUM CARBONATE (CALCIUM CARBONATE) [Concomitant]
  22. POTASSIUM CHLORIDE [Concomitant]
  23. MAGNESIUM GLUCONATE (MAGNESIUM GLUCONATE) [Concomitant]
  24. MYLANTA (MAGNESIUM HYDROXIDE, ALUMINIUM HYDROXIDE GEL, DRIED, SIMETICO [Concomitant]
  25. MULTIVITAMIN [Concomitant]
  26. ZOFRAN [Concomitant]
  27. COMPAZINE [Concomitant]

REACTIONS (2)
  - NAUSEA [None]
  - VOMITING [None]
